FAERS Safety Report 13544118 (Version 1)
Quarter: 2017Q2

REPORT INFORMATION
  Report Type: Spontaneous
  Country: US (occurrence: US)
  Receive Date: 20170515
  Receipt Date: 20170515
  Transmission Date: 20170830
  Serious: No
  Sender: FDA-Public Use
  Company Number: US-APOTEX-2016AP009238

PATIENT
  Sex: Female

DRUGS (1)
  1. QUETIAPINE FUMARATE. [Suspect]
     Active Substance: QUETIAPINE FUMARATE
     Indication: PRODUCT USED FOR UNKNOWN INDICATION
     Dosage: ONE TABLET DAILY
     Route: 048

REACTIONS (5)
  - Malaise [Unknown]
  - Somnolence [Unknown]
  - Product solubility abnormal [Unknown]
  - Fatigue [Unknown]
  - Sedation [Unknown]
